FAERS Safety Report 5964053-1 (Version None)
Quarter: 2008Q4

REPORT INFORMATION
  Report Type: 
  Country: None (occurrence: None)
  Receive Date: 20081124
  Receipt Date: 20081111
  Transmission Date: 20090506
  Serious: Yes (Other)
  Sender: FDA-Public Use
  Company Number: US-ELI_LILLY_AND_COMPANY-US200811002759

PATIENT
  Age: 70 Year
  Sex: Female

DRUGS (6)
  1. CYMBALTA [Suspect]
     Dosage: 20 MG, UNK
     Dates: start: 20080911, end: 20080924
  2. CYMBALTA [Suspect]
     Dosage: 30 MG, UNK
     Dates: start: 20080925
  3. CYMBALTA [Suspect]
     Dosage: 60 MG, UNK
  4. LAMICTAL [Concomitant]
  5. OLANZAPINE [Concomitant]
     Dosage: 20 MG, UNK
  6. LEVOTHYROXINE SODIUM [Concomitant]

REACTIONS (2)
  - PRURITUS [None]
  - STEVENS-JOHNSON SYNDROME [None]
